FAERS Safety Report 8066907-1 (Version None)
Quarter: 2012Q1

REPORT INFORMATION
  Report Type: 
  Country: None (occurrence: None)
  Receive Date: 20120124
  Receipt Date: 20120117
  Transmission Date: 20120608
  Serious: Yes (Hospitalization, Other)
  Sender: FDA-Public Use
  Company Number: PHHY2011TR100731

PATIENT
  Age: 43 Year
  Sex: Female

DRUGS (14)
  1. IMIPENEM AND CILASTATIN SODIUM [Concomitant]
     Dosage: 2 G/DAY
  2. AZATHIOPRINE [Concomitant]
     Dosage: 75 MG/DAY
  3. PREDNISOLONE [Suspect]
     Dosage: 5 MG/DAY
  4. ISONIAZID [Concomitant]
     Dosage: 300 MG/DAY
  5. BASILIXIMAB [Concomitant]
     Indication: IMMUNOSUPPRESSION
     Dosage: UNK UKN, UNK
  6. RIFAMPICIN [Concomitant]
     Dosage: 600 MG/DAY
  7. STREPTOMYCIN [Concomitant]
     Dosage: UNK UKN, UNK
  8. TACROLIMUS [Suspect]
     Dosage: 2 MG/DAY
  9. PYRAZINAMIDE [Concomitant]
     Dosage: 1500 MG/DAY
  10. CIPROFLOXACIN [Concomitant]
     Dosage: UNK UKN, UNK
  11. ETHAMBUTOL HYDROCHLORIDE [Concomitant]
     Dosage: 1250 MG/DAY
  12. AMPICILLIN W/SULBACTAM [Concomitant]
     Dosage: 4 G/DAY
  13. FLUCONAZOLE [Concomitant]
     Dosage: 400 MG/DAY
  14. MYCOPHENOLATE MOFETIL [Suspect]
     Indication: IMMUNOSUPPRESSION
     Dosage: 1080 MG/DAY

REACTIONS (15)
  - ANAEMIA [None]
  - THROMBOCYTOSIS [None]
  - TUBERCULOSIS [None]
  - LEUKOCYTOSIS [None]
  - BLOOD CREATININE INCREASED [None]
  - BLOOD UREA INCREASED [None]
  - NEUTROPHILIA [None]
  - PYREXIA [None]
  - CARBOHYDRATE ANTIGEN 125 INCREASED [None]
  - ABDOMINAL PAIN [None]
  - GAMMA-GLUTAMYLTRANSFERASE INCREASED [None]
  - PELVIC MASS [None]
  - ASCITES [None]
  - C-REACTIVE PROTEIN INCREASED [None]
  - PELVIC PAIN [None]
